FAERS Safety Report 21584936 (Version 1)
Quarter: 2022Q4

REPORT INFORMATION
  Report Type: Spontaneous
  Country: US (occurrence: US)
  Receive Date: 20221111
  Receipt Date: 20221111
  Transmission Date: 20230113
  Serious: Yes (Hospitalization)
  Sender: FDA-Public Use
  Company Number: US-ANIPHARMA-2022-US-026667

PATIENT
  Age: 61 Year
  Sex: Female
  Weight: 57.15 kg

DRUGS (12)
  1. CORTICOTROPIN [Suspect]
     Active Substance: CORTICOTROPIN
     Indication: Behcet^s syndrome
     Dosage: 1 DOSE WEEKLY FOR TWO WEEKS, THEN 80 UNITS 2 TIMES A WEEK
     Route: 030
     Dates: start: 20221004
  2. BLACK COHOSH [Concomitant]
     Active Substance: BLACK COHOSH
     Route: 065
  3. NITROGLYCERIN [Suspect]
     Active Substance: NITROGLYCERIN
     Route: 050
  4. MORPHINE [Suspect]
     Active Substance: MORPHINE
     Route: 042
  5. LISINOPRIL [Concomitant]
     Active Substance: LISINOPRIL
     Route: 065
  6. METOPROLOL [Concomitant]
     Active Substance: METOPROLOL
     Route: 065
  7. LYRICA [Concomitant]
     Active Substance: PREGABALIN
     Route: 065
  8. OTEZLA [Concomitant]
     Active Substance: APREMILAST
     Route: 065
  9. VENLAFAXINE [Concomitant]
     Active Substance: VENLAFAXINE HYDROCHLORIDE
     Route: 065
  10. OXYCODONE [Concomitant]
     Active Substance: OXYCODONE
     Route: 065
  11. BACLOFEN [Concomitant]
     Active Substance: BACLOFEN
     Route: 065
  12. HYDROCHLOROTHIAZIDE [Concomitant]
     Active Substance: HYDROCHLOROTHIAZIDE
     Route: 065

REACTIONS (10)
  - Product dose omission issue [Not Recovered/Not Resolved]
  - Vomiting [Recovered/Resolved]
  - Product use in unapproved indication [Not Recovered/Not Resolved]
  - Condition aggravated [Recovering/Resolving]
  - Drug effective for unapproved indication [Not Recovered/Not Resolved]
  - Blood pressure increased [Recovered/Resolved]
  - Dyspnoea [Recovering/Resolving]
  - Chest pain [Recovering/Resolving]
  - Muscle spasms [Recovering/Resolving]
  - Migraine [Recovered/Resolved]

NARRATIVE: CASE EVENT DATE: 20221004
